FAERS Safety Report 15888419 (Version 1)
Quarter: 2019Q1

REPORT INFORMATION
  Report Type: Spontaneous
  Country: FR (occurrence: FR)
  Receive Date: 20190130
  Receipt Date: 20190130
  Transmission Date: 20190417
  Serious: Yes (Death, Other)
  Sender: FDA-Public Use
  Company Number: FR-ACCORD-103448

PATIENT
  Age: 64 Year
  Sex: Female

DRUGS (4)
  1. CASPOFUNGIN/CASPOFUNGIN ACETATE [Concomitant]
     Indication: PROPHYLAXIS
     Dosage: 70 MG AT DAY 1 THEN 50 MG/DAY
  2. VORICONAZOLE. [Concomitant]
     Active Substance: VORICONAZOLE
     Dosage: 200 MG TWICE/DAY
  3. MYCOPHENOLIC ACID. [Suspect]
     Active Substance: MYCOPHENOLIC ACID
     Indication: IMMUNOSUPPRESSION
  4. TACROLIMUS. [Suspect]
     Active Substance: TACROLIMUS
     Indication: IMMUNOSUPPRESSION

REACTIONS (4)
  - Pneumonia [Fatal]
  - Septic shock [Fatal]
  - Bronchopulmonary aspergillosis [Unknown]
  - Multiple organ dysfunction syndrome [Fatal]
